FAERS Safety Report 20487580 (Version 1)
Quarter: 2022Q1

REPORT INFORMATION
  Report Type: Spontaneous
  Country: CH (occurrence: None)
  Receive Date: 20220218
  Receipt Date: 20220218
  Transmission Date: 20220423
  Serious: Yes (Other)
  Sender: FDA-Public Use
  Company Number: CH-Unichem Pharmaceuticals (USA) Inc-UCM202202-000116

PATIENT
  Age: 65 Year
  Sex: Male

DRUGS (4)
  1. PRAMIPEXOLE DIHYDROCHLORIDE [Suspect]
     Active Substance: PRAMIPEXOLE DIHYDROCHLORIDE
     Indication: Restless legs syndrome
  2. PRAMIPEXOLE DIHYDROCHLORIDE [Suspect]
     Active Substance: PRAMIPEXOLE DIHYDROCHLORIDE
  3. CLONAZEPAM [Concomitant]
     Active Substance: CLONAZEPAM
     Indication: Product used for unknown indication
  4. ROTIGOTINE [Concomitant]
     Active Substance: ROTIGOTINE
     Indication: Restless legs syndrome
     Dosage: PER DAY
     Route: 062

REACTIONS (7)
  - Fracture [Unknown]
  - Fall [Unknown]
  - Peritoneal perforation [Unknown]
  - Hallucination [Unknown]
  - Sleep disorder [Recovered/Resolved]
  - Agitation [Unknown]
  - Somnambulism [Recovered/Resolved]
